FAERS Safety Report 9774502 (Version 1)
Quarter: 2013Q4

REPORT INFORMATION
  Report Type: Spontaneous
  Country: US (occurrence: None)
  Receive Date: 20131219
  Receipt Date: 20131219
  Transmission Date: 20140711
  Serious: No
  Sender: FDA-Public Use
  Company Number: None

PATIENT
  Age: 47 Year
  Sex: Male
  Weight: 93.09 kg

DRUGS (8)
  1. ALFA 2 INTERFERON 2B (INTRON-A) [Suspect]
     Dates: start: 20131108
  2. ENALAPRIL [Concomitant]
  3. LORATADINE [Concomitant]
  4. NAPROXEN [Concomitant]
  5. NORCO [Concomitant]
  6. PROCHLORPERAZINE [Concomitant]
  7. SYNTHROID [Concomitant]
  8. TYLENOL [Concomitant]

REACTIONS (2)
  - Pain [None]
  - Arthralgia [None]
